FAERS Safety Report 15319860 (Version 1)
Quarter: 2018Q4

REPORT INFORMATION
  Report Type: Spontaneous
  Country: FR (occurrence: FR)
  Receive Date: 20180827
  Receipt Date: 20180827
  Transmission Date: 20190204
  Serious: Yes (Hospitalization, Other)
  Sender: FDA-Public Use
  Company Number: FR-MANKIND-000070

PATIENT
  Age: 16 Year
  Sex: Female

DRUGS (3)
  1. SALBUTAMOL [Concomitant]
     Active Substance: ALBUTEROL
     Indication: ASTHMA
  2. RISPERIDONE. [Suspect]
     Active Substance: RISPERIDONE
     Indication: HALLUCINATION, AUDITORY
     Dosage: 1 MG DAILY
     Dates: start: 201611
  3. BECLOMETASONE/FORMOTEROL [Concomitant]
     Indication: INTRACRANIAL PRESSURE INCREASED
     Dosage: 100/6 UG/DOSES TWICE A DAY

REACTIONS (4)
  - Diplopia [Unknown]
  - Weight increased [Unknown]
  - Intracranial pressure increased [Recovering/Resolving]
  - Papilloedema [Unknown]

NARRATIVE: CASE EVENT DATE: 201703
